FAERS Safety Report 8532487-7 (Version None)
Quarter: 2012Q3

REPORT INFORMATION
  Report Type: 
  Country: None (occurrence: None)
  Receive Date: 20120716
  Receipt Date: 20120716
  Transmission Date: 20120928
  Serious: Yes (Other)
  Sender: FDA-Public Use
  Company Number: None

PATIENT
  Sex: Female
  Weight: 92.5338 kg

DRUGS (1)
  1. AZITHROMYCIN [Suspect]
     Indication: BRONCHITIS
     Dosage: 500 MG 1ST DAY PO ; 250 MG DAILY TIL GONE PO
     Route: 048
     Dates: start: 20120712, end: 20120713

REACTIONS (8)
  - DIZZINESS [None]
  - URTICARIA [None]
  - DYSPNOEA [None]
  - FEELING ABNORMAL [None]
  - DIARRHOEA [None]
  - DRUG HYPERSENSITIVITY [None]
  - RASH [None]
  - CHEST DISCOMFORT [None]
